FAERS Safety Report 5546069-2 (Version None)
Quarter: 2007Q4

REPORT INFORMATION
  Report Type: 
  Country: None (occurrence: None)
  Receive Date: 20071211
  Receipt Date: 20070920
  Transmission Date: 20080405
  Serious: No
  Sender: FDA-Public Use
  Company Number: US-BRISTOL-MYERS SQUIBB COMPANY-13914924

PATIENT
  Age: 58 Year
  Sex: Female

DRUGS (2)
  1. EMSAM [Suspect]
     Dosage: STARTED AS 12MG/24HOUR ON 11/2006 WHICH WAS LOWERED TO 6MG/24HOUR ON 07/2007.
     Route: 062
     Dates: start: 20061101
  2. KLONOPIN [Concomitant]

REACTIONS (1)
  - APPLICATION SITE REACTION [None]
